FAERS Safety Report 9878606 (Version 2)
Quarter: 2014Q1

REPORT INFORMATION
  Report Type: Spontaneous
  Country: US (occurrence: US)
  Receive Date: 20140206
  Receipt Date: 20140206
  Transmission Date: 20141002
  Serious: Yes (Hospitalization)
  Sender: FDA-Public Use
  Company Number: US-B.I. PHARMACEUTICALS,INC./RIDGEFIELD-2011-BP-04654BP

PATIENT
  Age: 86 Year
  Sex: Male
  Weight: 88.45 kg

DRUGS (9)
  1. PRADAXA [Suspect]
     Indication: ATRIAL FIBRILLATION
     Dosage: 300 MG
     Route: 048
     Dates: start: 20110214, end: 20110219
  2. PRADAXA [Suspect]
     Indication: ANTICOAGULANT THERAPY
  3. PRADAXA [Suspect]
     Indication: CEREBROVASCULAR ACCIDENT PROPHYLAXIS
  4. ZETIA [Concomitant]
     Dosage: 10 MG
     Route: 048
     Dates: start: 2004, end: 2011
  5. LISINOPRIL [Concomitant]
     Dosage: 20 MG
     Route: 048
     Dates: start: 2004, end: 2011
  6. NORVASC [Concomitant]
     Dosage: 5 MG
     Route: 048
  7. TYLENOL [Concomitant]
  8. ASPIRIN [Concomitant]
     Dosage: 81 MG
     Route: 048
  9. VITAMIN B12 [Concomitant]

REACTIONS (7)
  - Haemorrhagic arteriovenous malformation [Unknown]
  - Gastrointestinal haemorrhage [Unknown]
  - Haemorrhagic anaemia [Unknown]
  - Renal failure acute [Unknown]
  - Epistaxis [Not Recovered/Not Resolved]
  - Diarrhoea [Not Recovered/Not Resolved]
  - Flatulence [Not Recovered/Not Resolved]
